FAERS Safety Report 10890677 (Version 1)
Quarter: 2015Q1

REPORT INFORMATION
  Report Type: Spontaneous
  Country: US (occurrence: US)
  Receive Date: 20150305
  Receipt Date: 20150305
  Transmission Date: 20150721
  Serious: Yes (Congenital Anomaly, Other)
  Sender: FDA-Public Use
  Company Number: US-APOTEX-2015AP007109

PATIENT
  Sex: Male

DRUGS (1)
  1. PAXIL [Suspect]
     Active Substance: PAROXETINE HYDROCHLORIDE
     Indication: PRODUCT USED FOR UNKNOWN INDICATION
     Dosage: 0.5 DF, Q.AM
     Route: 064

REACTIONS (7)
  - Congenital central nervous system anomaly [Unknown]
  - Seizure [Unknown]
  - Mild mental retardation [Unknown]
  - Foetal exposure during pregnancy [Unknown]
  - Encephalopathy [Unknown]
  - Speech disorder developmental [Unknown]
  - Attention deficit/hyperactivity disorder [Unknown]
